FAERS Safety Report 14769674 (Version 1)
Quarter: 2018Q2

REPORT INFORMATION
  Report Type: Spontaneous
  Country: US (occurrence: US)
  Receive Date: 20180417
  Receipt Date: 20180417
  Transmission Date: 20180711
  Serious: Yes (Hospitalization, Other)
  Sender: FDA-Public Use
  Company Number: US-GLAXOSMITHKLINE-US2018065986

PATIENT
  Age: 71 Year
  Sex: Female

DRUGS (12)
  1. ADVAIR DISKUS [Suspect]
     Active Substance: FLUTICASONE PROPIONATE\SALMETEROL XINAFOATE
     Indication: EMPHYSEMA
     Dosage: 1 PUFF(S), BID
     Route: 055
     Dates: start: 2008
  2. ROPINIROLE. [Concomitant]
     Active Substance: ROPINIROLE
  3. DUONEB [Concomitant]
     Active Substance: ALBUTEROL SULFATE\IPRATROPIUM BROMIDE
  4. AMIODARONE [Concomitant]
     Active Substance: AMIODARONE
  5. CHLORTHALIDONE. [Concomitant]
     Active Substance: CHLORTHALIDONE
  6. OXYGEN. [Concomitant]
     Active Substance: OXYGEN
  7. PANTOPRAZOLE [Concomitant]
     Active Substance: PANTOPRAZOLE
  8. PRAVASTATIN. [Concomitant]
     Active Substance: PRAVASTATIN
  9. APRISO [Concomitant]
     Active Substance: MESALAMINE
  10. CARVEDILOL. [Concomitant]
     Active Substance: CARVEDILOL
  11. QUINAPRIL. [Concomitant]
     Active Substance: QUINAPRIL
  12. ADVAIR DISKUS [Suspect]
     Active Substance: FLUTICASONE PROPIONATE\SALMETEROL XINAFOATE
     Indication: ASTHMA

REACTIONS (10)
  - Gait disturbance [Unknown]
  - Toe amputation [Unknown]
  - Intentional product misuse [Unknown]
  - Peripheral vascular disorder [Unknown]
  - Arterial bypass operation [Unknown]
  - Clostridium difficile infection [Unknown]
  - Oesophageal carcinoma [Unknown]
  - Underdose [Unknown]
  - Fall [Unknown]
  - Wheezing [Unknown]

NARRATIVE: CASE EVENT DATE: 201701
